FAERS Safety Report 20049079 (Version 6)
Quarter: 2022Q1

REPORT INFORMATION
  Report Type: Spontaneous
  Country: US (occurrence: US)
  Receive Date: 20211109
  Receipt Date: 20220107
  Transmission Date: 20220423
  Serious: No
  Sender: FDA-Public Use
  Company Number: US-UNITED THERAPEUTICS-UNT-2021-021498

PATIENT
  Sex: Male
  Weight: 121.09 kg

DRUGS (11)
  1. REMODULIN [Suspect]
     Active Substance: TREPROSTINIL
     Indication: Pulmonary arterial hypertension
     Dosage: UNK UNK, CONTINUING
     Route: 058
     Dates: start: 20211013
  2. REMODULIN [Suspect]
     Active Substance: TREPROSTINIL
     Dosage: 0.024 ?G/KG, CONTINUING (PRE FILLED WITH 3 ML PER CASSETTE AT ARATE OF 24 MCL/HR)
     Route: 058
     Dates: start: 202110
  3. REMODULIN [Suspect]
     Active Substance: TREPROSTINIL
     Dosage: 0.012 ?G/KG, CONTINUING (PRE FILLED WITH 3 ML PER CASSETTE AT A RATE OF 24 MCL/HR)
     Route: 058
     Dates: start: 202110
  4. REMODULIN [Suspect]
     Active Substance: TREPROSTINIL
     Dosage: 0.008 ?G/KG, CONTINUING (PRE-FILLED WITH 2.6 ML PER CASSETTE, AT PUMP RATE OF 16 MCL PER HOUR)
     Route: 058
     Dates: start: 202110
  5. REMODULIN [Suspect]
     Active Substance: TREPROSTINIL
     Dosage: UNK
  6. REMODULIN [Suspect]
     Active Substance: TREPROSTINIL
     Indication: Pulmonary arterial hypertension
     Dosage: 0.018 ?G/KG, CONTINUING (PRE-FILLED WITH 3 ML PER CASSETTE; RATE OF 24 MCL PER HOUR)
     Route: 058
     Dates: start: 2021
  7. REMODULIN [Suspect]
     Active Substance: TREPROSTINIL
     Dosage: 0.024 ?G/KG (PREFILLED WITH 2.4ML PER CASSETTE; PUMP RATE 24 MCL PER HOUR)
     Route: 058
     Dates: start: 2021
  8. REMODULIN [Suspect]
     Active Substance: TREPROSTINIL
     Dosage: 0.030 ?G/KG, CONTINUING (PRE-FILLED WITH 2.8 ML PER CASSETTE, AT PUMP RATE OF 3 MCL PER HOUR)
     Route: 058
     Dates: start: 2021
  9. REMODULIN [Suspect]
     Active Substance: TREPROSTINIL
     Dosage: UNK UNK, CONTINUING
     Route: 058
     Dates: start: 2021
  10. REMODULIN [Suspect]
     Active Substance: TREPROSTINIL
     Dosage: 0.030 ?G/KG, CONTINUING (PRE-FILLED WITH 2.8 ML PER CASSETTE, AT PUMP RATE OF 3 MCL PER HOUR)
     Route: 058
     Dates: start: 2021
  11. SILDENAFIL [Concomitant]
     Active Substance: SILDENAFIL
     Indication: Product used for unknown indication
     Dosage: UNK
     Route: 065

REACTIONS (28)
  - Infusion site pain [Unknown]
  - Pain in jaw [Unknown]
  - Pain in extremity [Recovered/Resolved]
  - Myalgia [Recovered/Resolved]
  - Arthralgia [Unknown]
  - Muscle spasms [Unknown]
  - Back pain [Recovered/Resolved]
  - Overdose [Recovered/Resolved]
  - Device issue [Recovered/Resolved]
  - Incorrect dose administered by device [Recovered/Resolved]
  - Device infusion issue [Recovered/Resolved]
  - Device infusion issue [Recovered/Resolved]
  - Device failure [Unknown]
  - Device wireless communication issue [Recovered/Resolved]
  - Device failure [Recovered/Resolved]
  - Device wireless communication issue [Recovered/Resolved]
  - Device failure [Unknown]
  - Device wireless communication issue [Recovered/Resolved]
  - Device wireless communication issue [Recovered/Resolved]
  - Device failure [Recovered/Resolved]
  - Device leakage [Unknown]
  - Device failure [Recovered/Resolved]
  - Device failure [Unknown]
  - Device failure [Unknown]
  - Infusion site erythema [Unknown]
  - Unintentional medical device removal [Unknown]
  - Device failure [Recovered/Resolved]
  - Device leakage [Unknown]

NARRATIVE: CASE EVENT DATE: 20210101
